FAERS Safety Report 8192705-4 (Version None)
Quarter: 2012Q1

REPORT INFORMATION
  Report Type: 
  Country: None (occurrence: None)
  Receive Date: 20120308
  Receipt Date: 20120229
  Transmission Date: 20120608
  Serious: Yes (Death)
  Sender: FDA-Public Use
  Company Number: JP-JNJFOC-20120301519

PATIENT
  Sex: Female
  Weight: 40 kg

DRUGS (19)
  1. GASMOTIN [Concomitant]
     Route: 048
     Dates: end: 20111220
  2. COTRIM [Concomitant]
     Route: 048
     Dates: end: 20111220
  3. FENTANYL-100 [Suspect]
     Indication: PAIN
     Route: 062
     Dates: start: 20111215
  4. DIGOXIN [Concomitant]
     Route: 048
     Dates: end: 20111220
  5. DIART [Concomitant]
     Route: 048
     Dates: end: 20111217
  6. PRORENAL [Concomitant]
     Route: 048
     Dates: end: 20111220
  7. TRAMADOL HYDROCHLORIDE [Concomitant]
     Indication: PAIN
     Route: 048
     Dates: start: 20111215
  8. ACETAMINOPHEN [Concomitant]
     Indication: PAIN
     Route: 048
     Dates: start: 20111215
  9. LANSOPRAZOLE [Concomitant]
     Route: 048
     Dates: end: 20111220
  10. LOSARTAN POTASSIUM [Concomitant]
     Route: 048
     Dates: end: 20111220
  11. ASPIRIN [Concomitant]
     Route: 048
     Dates: end: 20111216
  12. AN UNKNOWN MEDICATION [Concomitant]
     Route: 048
     Dates: end: 20111215
  13. PREDNISOLONE [Concomitant]
     Route: 048
     Dates: end: 20111220
  14. DILTIAZEM HCL [Concomitant]
     Route: 048
     Dates: end: 20111220
  15. MIRTAZAPINE [Concomitant]
     Route: 048
     Dates: end: 20111219
  16. SODIUM CHLORIDE [Concomitant]
     Route: 048
     Dates: end: 20111220
  17. DORNER [Concomitant]
     Indication: PAIN
     Route: 048
     Dates: end: 20111220
  18. WARFARIN SODIUM [Concomitant]
     Indication: PAIN
     Route: 048
     Dates: end: 20111220
  19. TRACLEER [Concomitant]
     Route: 048
     Dates: end: 20111220

REACTIONS (1)
  - SCLERODERMA [None]
